FAERS Safety Report 4639265-X (Version None)
Quarter: 2005Q2

REPORT INFORMATION
  Report Type: 
  Country: None (occurrence: None)
  Receive Date: 20050418
  Receipt Date: 20050406
  Transmission Date: 20051028
  Serious: Yes (Other)
  Sender: FDA-Public Use
  Company Number: 2005056196

PATIENT
  Age: 71 Year
  Sex: Female

DRUGS (2)
  1. NEURONTIN [Suspect]
     Indication: NEUROPATHY
     Dosage: 100 MG (100MG, 1 IN1 D), ORAL
     Route: 048
     Dates: start: 20040101
  2. VALSARTAN [Concomitant]

REACTIONS (4)
  - DRUG EFFECT DECREASED [None]
  - MUSCULOSKELETAL STIFFNESS [None]
  - SELF-MEDICATION [None]
  - SPINAL COMPRESSION FRACTURE [None]
